FAERS Safety Report 9096811 (Version 1)
Quarter: 2013Q1

REPORT INFORMATION
  Report Type: Spontaneous
  Country: US (occurrence: US)
  Receive Date: 20130211
  Receipt Date: 20130211
  Transmission Date: 20140127
  Serious: No
  Sender: FDA-Public Use
  Company Number: US-BAYER-2013-012803

PATIENT
  Age: 42 Year
  Sex: Female

DRUGS (11)
  1. BETASERON [Suspect]
     Dosage: 0.25 MG, UNK
     Route: 058
     Dates: start: 1994
  2. ADVIL [Concomitant]
  3. ALEVE CAPLET/TABLET,MIDOL EXTENDED RELIEF CAPLET [Concomitant]
  4. FLUOXETINE [Concomitant]
     Dosage: 40 MG, UNK
  5. FEXOFENADINE [Concomitant]
     Dosage: 30 MG, UNK
  6. DESONIDE [Concomitant]
     Dosage: 0.05 %, UNK
  7. METROGEL [Concomitant]
     Dosage: 1 %, UNK
  8. MULTIVITAMIN [Concomitant]
  9. FIBER [Concomitant]
     Dosage: 0.52 G, UNK
  10. VITAMIN D3 [Concomitant]
     Dosage: 4000 U, UNK
  11. OMEGA 3 [Concomitant]
     Dosage: 1000 MG, UNK

REACTIONS (2)
  - Myalgia [Unknown]
  - Chills [Unknown]
